FAERS Safety Report 8987352 (Version 1)
Quarter: 2012Q4

REPORT INFORMATION
  Report Type: 
  Country: MX (occurrence: MX)
  Receive Date: 20121226
  Receipt Date: 20121226
  Transmission Date: 20130627
  Serious: Yes (Hospitalization, Other)
  Sender: FDA-Public Use
  Company Number: PHHY2012MX117552

PATIENT
  Age: 59 Year
  Sex: Female

DRUGS (7)
  1. ONBREZ [Suspect]
     Indication: CHRONIC OBSTRUCTIVE PULMONARY DISEASE
     Dosage: 150 ug, QD
     Dates: start: 20111020
  2. PRADAXAR [Concomitant]
     Dosage: UNK
     Route: 048
     Dates: start: 201211
  3. LANOXIN [Concomitant]
     Dosage: UNK
     Route: 048
     Dates: start: 201211
  4. SEROLUX [Concomitant]
     Dosage: UNK
     Route: 048
     Dates: start: 201211
  5. ATARAX                                  /CAN/ [Concomitant]
     Dosage: UNK
     Route: 048
     Dates: start: 201211
  6. TECTA [Concomitant]
     Dosage: UNK
     Route: 048
     Dates: start: 201211
  7. CIALIS [Concomitant]
     Dosage: UNK
     Route: 048
     Dates: start: 201211

REACTIONS (4)
  - Oral candidiasis [Recovered/Resolved]
  - Throat irritation [Recovered/Resolved]
  - Cough [Recovered/Resolved]
  - Influenza [Not Recovered/Not Resolved]
